FAERS Safety Report 8964382 (Version 1)
Quarter: 2012Q4

REPORT INFORMATION
  Report Type: 
  Country: US (occurrence: US)
  Receive Date: 20121214
  Receipt Date: 20121214
  Transmission Date: 20130627
  Serious: No
  Sender: FDA-Public Use
  Company Number: US-GLAXOSMITHKLINE-A0978599A

PATIENT
  Age: 73 Year
  Sex: Male

DRUGS (7)
  1. AVODART [Suspect]
     Indication: PROSTATOMEGALY
     Dosage: .5MG Per day
     Route: 048
     Dates: start: 20120328
  2. LISINOPRIL [Concomitant]
  3. AMLODIPINE [Concomitant]
  4. CRESTOR [Concomitant]
  5. NITRO PATCH [Concomitant]
  6. PLAVIX [Concomitant]
  7. ASPIRIN [Concomitant]

REACTIONS (1)
  - Pain [Not Recovered/Not Resolved]
